FAERS Safety Report 7903542-7 (Version None)
Quarter: 2011Q4

REPORT INFORMATION
  Report Type: 
  Country: None (occurrence: None)
  Receive Date: 20111109
  Receipt Date: 20111109
  Transmission Date: 20120403
  Serious: Yes (Other)
  Sender: FDA-Public Use
  Company Number: None

PATIENT
  Age: 42 Year
  Sex: Male
  Weight: 90.718 kg

DRUGS (1)
  1. STAMINA RX [Suspect]
     Indication: ERECTILE DYSFUNCTION
     Dosage: ?
     Route: 048
     Dates: start: 20050115, end: 20050820

REACTIONS (2)
  - OPTIC ISCHAEMIC NEUROPATHY [None]
  - BLINDNESS [None]
